FAERS Safety Report 12289009 (Version 2)
Quarter: 2016Q3

REPORT INFORMATION
  Report Type: Spontaneous
  Country: US (occurrence: US)
  Receive Date: 20160421
  Receipt Date: 20160725
  Transmission Date: 20161109
  Serious: No
  Sender: FDA-Public Use
  Company Number: US-ASTRAZENECA-2016SE27685

PATIENT
  Sex: Male

DRUGS (1)
  1. SYMBICORT [Suspect]
     Active Substance: BUDESONIDE\FORMOTEROL FUMARATE DIHYDRATE
     Dosage: DOSE:160/4.5 MCG 2 PUFFS, FREQUENCY: TWO TIMES A DAY
     Route: 055

REACTIONS (2)
  - Pulmonary congestion [Unknown]
  - Product taste abnormal [Unknown]
